FAERS Safety Report 5065808-0 (Version None)
Quarter: 2006Q3

REPORT INFORMATION
  Report Type: 
  Country: None (occurrence: None)
  Receive Date: 20060727
  Receipt Date: 20060714
  Transmission Date: 20061208
  Serious: Yes (Death, Hospitalization)
  Sender: FDA-Public Use
  Company Number: 2006RL000255

PATIENT
  Age: 74 Year
  Sex: Male

DRUGS (12)
  1. PROPRANOLOL HYDROCHLORIDE [Suspect]
     Indication: AGITATION
     Dosage: 60 MG BID ; 60 MG TID ; 40 MG TID ; 40 MG BID ; 20 MG BID; 10 MG BID ; 10 MG QD
  2. ROFECOXIB [Suspect]
     Indication: PAIN IN EXTREMITY
  3. ACYCLOVIR [Suspect]
     Indication: HERPES VIRUS INFECTION
  4. QUETIAPINE FUMARATE [Suspect]
     Indication: DRUG USE FOR UNKNOWN INDICATION
     Dosage: 400 MG QD ; 100 MG QD
  5. GABAPENTIN [Suspect]
     Indication: DRUG USE FOR UNKNOWN INDICATION
     Dosage: 900 MG QD ; 300 MG BID
  6. RISPERIDONE [Suspect]
     Indication: DRUG USE FOR UNKNOWN INDICATION
     Dosage: 1 MG PRN IM
     Route: 030
  7. OLANZAPINE [Suspect]
     Indication: DRUG USE FOR UNKNOWN INDICATION
  8. RIVASTIGMINE [Concomitant]
  9. DOXEPIN [Concomitant]
  10. CITALOPRAM HYDROBROMIDE [Concomitant]
  11. ASPIRIN [Concomitant]
  12. CHLORPROMAZINE [Concomitant]

REACTIONS (18)
  - AGGRESSION [None]
  - AGITATION [None]
  - BENIGN PROSTATIC HYPERPLASIA [None]
  - CARDIAC FAILURE [None]
  - CONDITION AGGRAVATED [None]
  - CONFUSIONAL STATE [None]
  - DELIRIUM [None]
  - EATING DISORDER [None]
  - FAECALOMA [None]
  - GENERAL PHYSICAL HEALTH DETERIORATION [None]
  - HYDRONEPHROSIS [None]
  - INTESTINAL OBSTRUCTION [None]
  - MENTAL IMPAIRMENT [None]
  - OFF LABEL USE [None]
  - RENAL FAILURE [None]
  - SCREAMING [None]
  - SEPSIS [None]
  - STUPOR [None]
